FAERS Safety Report 7585789-5 (Version None)
Quarter: 2011Q2

REPORT INFORMATION
  Report Type: 
  Country: None (occurrence: None)
  Receive Date: 20110629
  Receipt Date: 20110629
  Transmission Date: 20111010
  Serious: No
  Sender: FDA-Public Use
  Company Number: None

PATIENT
  Age: 55 Year
  Sex: Female

DRUGS (1)
  1. PROMETRIUM [Suspect]

REACTIONS (4)
  - HYPOAESTHESIA [None]
  - DRY MOUTH [None]
  - VOMITING [None]
  - DEPRESSION [None]
